FAERS Safety Report 6771523-5 (Version None)
Quarter: 2010Q2

REPORT INFORMATION
  Report Type: 
  Country: None (occurrence: None)
  Receive Date: 20100615
  Receipt Date: 20100603
  Transmission Date: 20101027
  Serious: Yes (Hospitalization)
  Sender: FDA-Public Use
  Company Number: 009969

PATIENT
  Age: 79 Year
  Sex: Male

DRUGS (2)
  1. PLETAL [Suspect]
     Indication: LACUNAR INFARCTION
     Dosage: 100 MG, BID ORAL
     Route: 048
  2. ASPIRIN [Suspect]
     Dosage: 100 MG, QD ORAL
     Route: 048

REACTIONS (1)
  - CEREBELLAR HAEMORRHAGE [None]
